FAERS Safety Report 4471417-4 (Version None)
Quarter: 2004Q4

REPORT INFORMATION
  Report Type: 
  Country: None (occurrence: None)
  Receive Date: 20041007
  Receipt Date: 20040922
  Transmission Date: 20050328
  Serious: Yes (Other)
  Sender: FDA-Public Use
  Company Number: 2004AL000270

PATIENT
  Age: 60 Year
  Sex: Female

DRUGS (2)
  1. HYDROCHLOROTHIAZDE TAB [Suspect]
     Dosage: 25MG
  2. CARBAMAZEPINE [Suspect]
     Indication: CONVULSION
     Dosage: 200MG, BID

REACTIONS (8)
  - BALANCE DISORDER [None]
  - BLOOD CHLORIDE DECREASED [None]
  - BLOOD POTASSIUM DECREASED [None]
  - COMPLEX PARTIAL SEIZURES [None]
  - DIZZINESS [None]
  - HYPONATRAEMIA [None]
  - LETHARGY [None]
  - SOMNOLENCE [None]
